FAERS Safety Report 20157436 (Version 1)
Quarter: 2021Q4

REPORT INFORMATION
  Report Type: Spontaneous
  Country: US (occurrence: US)
  Receive Date: 20211207
  Receipt Date: 20211207
  Transmission Date: 20220303
  Serious: No
  Sender: FDA-Public Use
  Company Number: US-IBSA PHARMA INC.-2021IBS000024

PATIENT

DRUGS (1)
  1. TIROSINT [Suspect]
     Active Substance: LEVOTHYROXINE SODIUM
     Indication: Autoimmune thyroiditis
     Dosage: 13 ?G, UNK
     Route: 048

REACTIONS (5)
  - Peripheral swelling [Recovering/Resolving]
  - Dermatitis [Recovering/Resolving]
  - Alopecia [Recovering/Resolving]
  - Tremor [Recovering/Resolving]
  - Intentional dose omission [Unknown]
